FAERS Safety Report 9542500 (Version 3)
Quarter: 2013Q4

REPORT INFORMATION
  Report Type: Spontaneous
  Country: IT (occurrence: IT)
  Receive Date: 20130923
  Receipt Date: 20131024
  Transmission Date: 20140711
  Serious: Yes (Other)
  Sender: FDA-Public Use
  Company Number: PHHY2013IT104952

PATIENT
  Age: 36 Year
  Sex: Male

DRUGS (5)
  1. CARBAMAZEPINE [Suspect]
     Dosage: 1 DF, DAILY
     Route: 048
  2. BROMAZEPAM [Suspect]
     Dosage: 10 GTT, DAILY
     Route: 048
  3. RISPERDAL [Suspect]
     Dosage: 2 MG, DAILY
     Route: 048
  4. LYRICA [Suspect]
     Dosage: 75 MG, DAILY
     Route: 048
  5. FLUVOXAMINE EG [Suspect]
     Dosage: 50 MG, DAILY
     Route: 048

REACTIONS (6)
  - Sluggishness [Unknown]
  - Vertigo [Unknown]
  - Dysarthria [Unknown]
  - Ataxia [Unknown]
  - Diplopia [Unknown]
  - Vomiting [Unknown]
